FAERS Safety Report 13982122 (Version 3)
Quarter: 2018Q1

REPORT INFORMATION
  Report Type: Spontaneous
  Country: US (occurrence: US)
  Receive Date: 20170918
  Receipt Date: 20180312
  Transmission Date: 20180508
  Serious: Yes (Other)
  Sender: FDA-Public Use
  Company Number: US-ENDO PHARMACEUTICALS INC-2017-004872

PATIENT
  Age: 76 Year
  Sex: Male
  Weight: 77.1 kg

DRUGS (2)
  1. STRIANT [Suspect]
     Active Substance: TESTOSTERONE
     Indication: ANDROGEN REPLACEMENT THERAPY
     Dosage: 30 MG, BID
     Route: 002
     Dates: start: 2003, end: 201512
  2. VALSARTAN. [Concomitant]
     Active Substance: VALSARTAN
     Indication: BLOOD PRESSURE MEASUREMENT
     Dosage: UNK UNKNOWN, UNKNOWN
     Route: 065
     Dates: start: 1992, end: 2017

REACTIONS (6)
  - Mesenteric vein thrombosis [Unknown]
  - Deep vein thrombosis [Unknown]
  - Abdominal pain [Unknown]
  - Disorientation [Unknown]
  - Portal vein thrombosis [Unknown]
  - Thrombosis [Unknown]

NARRATIVE: CASE EVENT DATE: 20150911
